FAERS Safety Report 21626331 (Version 1)
Quarter: 2022Q4

REPORT INFORMATION
  Report Type: Spontaneous
  Country: TR (occurrence: TR)
  Receive Date: 20221122
  Receipt Date: 20221122
  Transmission Date: 20230113
  Serious: Yes (Other)
  Sender: FDA-Public Use
  Company Number: TR-SUN PHARMACEUTICAL INDUSTRIES LTD-2022RR-364949

PATIENT
  Age: 27 Year
  Sex: Male

DRUGS (2)
  1. DICLOFENAC [Suspect]
     Active Substance: DICLOFENAC
     Indication: Myalgia
     Dosage: 50 MILLIGRAM, QD, TABLET
     Route: 048
  2. DICLOFENAC [Suspect]
     Active Substance: DICLOFENAC
     Indication: Product used for unknown indication
     Dosage: 750 MILLIGRAM, 15 DICLOFENAC SODIUM TABLETS (750 MG)
     Route: 048

REACTIONS (5)
  - Suicide attempt [Recovering/Resolving]
  - Gastrointestinal tract irritation [Recovering/Resolving]
  - Intestinal haemorrhage [Recovering/Resolving]
  - Drug-induced liver injury [Recovering/Resolving]
  - Nephropathy toxic [Recovering/Resolving]
